FAERS Safety Report 8850000 (Version 1)
Quarter: 2012Q4

REPORT INFORMATION
  Report Type: Report from Study
  Country: UG (occurrence: UG)
  Receive Date: 20121019
  Receipt Date: 20121019
  Transmission Date: 20130627
  Serious: Yes (Death)
  Sender: FDA-Public Use
  Company Number: UG-ABBOTT-12P-165-0995790-00

PATIENT
  Age: 23 Year
  Sex: Female

DRUGS (4)
  1. ALUVIA [Suspect]
     Indication: HIV INFECTION
     Dosage: 400mg/100mg
     Route: 048
     Dates: start: 20120215
  2. AZT [Concomitant]
     Indication: HIV INFECTION
     Route: 048
     Dates: start: 20120215
  3. 3TC [Concomitant]
     Indication: HIV INFECTION
     Route: 048
     Dates: start: 20120215
  4. SEPTRIN [Concomitant]
     Indication: PRODUCT USED FOR UNKNOWN INDICATION
     Dates: start: 20120215

REACTIONS (1)
  - Shock haemorrhagic [Fatal]
